FAERS Safety Report 4939947-6 (Version None)
Quarter: 2006Q1

REPORT INFORMATION
  Report Type: 
  Country: None (occurrence: None)
  Receive Date: 20060310
  Receipt Date: 20060306
  Transmission Date: 20060701
  Serious: Yes (Hospitalization)
  Sender: FDA-Public Use
  Company Number: ES-GLAXOSMITHKLINE-B0414996A

PATIENT
  Age: 11 Month
  Sex: Female
  Weight: 11 kg

DRUGS (1)
  1. AUGMENTIN '125' [Suspect]
     Indication: DRUG USE FOR UNKNOWN INDICATION
     Route: 048
     Dates: start: 20041227, end: 20041231

REACTIONS (3)
  - ABNORMAL FAECES [None]
  - DIARRHOEA [None]
  - VOMITING [None]
